FAERS Safety Report 18434813 (Version 8)
Quarter: 2021Q3

REPORT INFORMATION
  Report Type: Report from Study
  Country: None (occurrence: CO)
  Receive Date: 20201028
  Receipt Date: 20210928
  Transmission Date: 20211014
  Serious: Yes (Other)
  Sender: FDA-Public Use
  Company Number: CO-ABBVIE-18K-036-2591043-00

PATIENT
  Age: 69 Year
  Sex: Female
  Weight: 50.5 kg

DRUGS (13)
  1. HYDROCODONE BITARTRATE AND ACETAMINOPHEN [Suspect]
     Active Substance: ACETAMINOPHEN\HYDROCODONE BITARTRATE
     Indication: PRODUCT USED FOR UNKNOWN INDICATION
     Route: 065
     Dates: end: 2019
  2. CICLORELAX [Suspect]
     Active Substance: CYCLOBENZAPRINE HYDROCHLORIDE
     Indication: PRODUCT USED FOR UNKNOWN INDICATION
     Route: 065
     Dates: end: 2019
  3. ARNICA [Concomitant]
     Active Substance: ARNICA MONTANA FLOWER
     Indication: PRODUCT USED FOR UNKNOWN INDICATION
  4. VALERIAN [Concomitant]
     Active Substance: VALERIAN
     Indication: PRODUCT USED FOR UNKNOWN INDICATION
  5. VITAMIN D [Concomitant]
     Active Substance: VITAMIN D NOS
     Indication: PRODUCT USED FOR UNKNOWN INDICATION
  6. ETORICOXIB. [Suspect]
     Active Substance: ETORICOXIB
     Indication: PRODUCT USED FOR UNKNOWN INDICATION
     Route: 065
     Dates: end: 2019
  7. HYDROCODONE BITARTRATE W/PARACETAMOL [Concomitant]
     Active Substance: ACETAMINOPHEN\HYDROCODONE BITARTRATE
     Indication: PRODUCT USED FOR UNKNOWN INDICATION
  8. ANAPROX [Concomitant]
     Active Substance: NAPROXEN SODIUM
     Indication: PRODUCT USED FOR UNKNOWN INDICATION
     Dosage: SPRAY
  9. HUMIRA [Suspect]
     Active Substance: ADALIMUMAB
     Indication: ANKYLOSING SPONDYLITIS
     Route: 058
     Dates: start: 20180712
  10. CALCIUM VITAMIN D [Concomitant]
     Active Substance: CALCIUM\VITAMIN D
     Indication: PRODUCT USED FOR UNKNOWN INDICATION
  11. CITRAGEL [Concomitant]
     Indication: MINERAL SUPPLEMENTATION
  12. HUMIRA [Suspect]
     Active Substance: ADALIMUMAB
     Route: 058
  13. DOLOFF [Suspect]
     Active Substance: ACETAMINOPHEN\HYDROCODONE BITARTRATE
     Indication: PRODUCT USED FOR UNKNOWN INDICATION
     Dosage: 7.5 ?325
     Route: 048
     Dates: start: 201907

REACTIONS (41)
  - Fatigue [Not Recovered/Not Resolved]
  - Weight increased [Not Recovered/Not Resolved]
  - Memory impairment [Unknown]
  - Osteoarthritis [Not Recovered/Not Resolved]
  - Acupuncture [Not Recovered/Not Resolved]
  - Muscle disorder [Not Recovered/Not Resolved]
  - Myalgia [Not Recovered/Not Resolved]
  - Radius fracture [Recovered/Resolved]
  - Dizziness [Recovered/Resolved]
  - Drug ineffective [Not Recovered/Not Resolved]
  - Fall [Recovering/Resolving]
  - Pain in jaw [Not Recovered/Not Resolved]
  - Hepatitis C [Not Recovered/Not Resolved]
  - Asthenia [Not Recovered/Not Resolved]
  - Procedural headache [Not Recovered/Not Resolved]
  - Tooth disorder [Unknown]
  - Pain [Not Recovered/Not Resolved]
  - Facial pain [Not Recovered/Not Resolved]
  - Pain of skin [Not Recovered/Not Resolved]
  - Dizziness [Not Recovered/Not Resolved]
  - Dysphonia [Not Recovered/Not Resolved]
  - Visual impairment [Unknown]
  - Depression [Unknown]
  - Influenza [Not Recovered/Not Resolved]
  - Headache [Not Recovered/Not Resolved]
  - Injection site pruritus [Recovered/Resolved]
  - Weight increased [Recovered/Resolved]
  - Neck pain [Unknown]
  - Fatigue [Recovered/Resolved]
  - Ocular hyperaemia [Not Recovered/Not Resolved]
  - Ulna fracture [Recovered/Resolved]
  - Thrombosis [Unknown]
  - Pain [Not Recovered/Not Resolved]
  - Laryngeal pain [Not Recovered/Not Resolved]
  - Decreased appetite [Not Recovered/Not Resolved]
  - Hyperhidrosis [Unknown]
  - Paraesthesia [Unknown]
  - Spinal pain [Not Recovered/Not Resolved]
  - Bone pain [Not Recovered/Not Resolved]
  - Joint range of motion decreased [Not Recovered/Not Resolved]
  - Nuchal rigidity [Not Recovered/Not Resolved]

NARRATIVE: CASE EVENT DATE: 2018
